FAERS Safety Report 8066814-4 (Version None)
Quarter: 2012Q1

REPORT INFORMATION
  Report Type: 
  Country: None (occurrence: None)
  Receive Date: 20120124
  Receipt Date: 20120115
  Transmission Date: 20120608
  Serious: Yes (Other)
  Sender: FDA-Public Use
  Company Number: PHHY2012MX004276

PATIENT
  Sex: Female

DRUGS (1)
  1. TRILEPTAL [Suspect]
     Indication: EPILEPSY
     Dosage: 02 TSP,DAILY
     Dates: start: 20111223, end: 20111228

REACTIONS (4)
  - INFLAMMATION [None]
  - MASS [None]
  - MALAISE [None]
  - PRURITUS [None]
